FAERS Safety Report 7899089-7 (Version None)
Quarter: 2011Q4

REPORT INFORMATION
  Report Type: 
  Country: None (occurrence: None)
  Receive Date: 20111107
  Receipt Date: 20111026
  Transmission Date: 20120403
  Serious: Yes (Other)
  Sender: FDA-Public Use
  Company Number: US-SANTEN INC.-INC-11-000058

PATIENT

DRUGS (2)
  1. TIMOLOL MALEATE [Suspect]
     Indication: GLAUCOMA
     Route: 047
  2. TIMOLOL MALEATE [Suspect]
     Route: 047

REACTIONS (2)
  - DEVELOPMENTAL GLAUCOMA [None]
  - EYE HAEMORRHAGE [None]
